FAERS Safety Report 10555493 (Version 1)
Quarter: 2014Q4

REPORT INFORMATION
  Report Type: Spontaneous
  Country: CN (occurrence: CN)
  Receive Date: 20141030
  Receipt Date: 20141030
  Transmission Date: 20150529
  Serious: Yes (Life-Threatening, Hospitalization)
  Sender: FDA-Public Use
  Company Number: CN-MYLANLABS-2014M1008991

PATIENT

DRUGS (2)
  1. INSULIN [Concomitant]
     Active Substance: INSULIN NOS
     Dosage: 20 UNITS QD7 AND 18 UNITS QD18
     Route: 058
  2. VALPROATE SEMISODIUM [Suspect]
     Active Substance: DIVALPROEX SODIUM
     Dosage: 1200 MG, QD
     Route: 042

REACTIONS (1)
  - Ileus paralytic [Recovered/Resolved]
